FAERS Safety Report 18249080 (Version 9)
Quarter: 2020Q4

REPORT INFORMATION
  Report Type: Report from Study
  Country: BR (occurrence: BR)
  Receive Date: 20200909
  Receipt Date: 20201123
  Transmission Date: 20210113
  Serious: Yes (Death, Life-Threatening, Hospitalization)
  Sender: FDA-Public Use
  Company Number: BR-ROCHE-2661714

PATIENT
  Age: 66 Year
  Sex: Female
  Weight: 60 kg

DRUGS (15)
  1. ROCURONIO [Concomitant]
     Active Substance: ROCURONIUM BROMIDE
     Indication: NEUROMUSCULAR BLOCKADE
     Dates: start: 20200815, end: 20200818
  2. HEPARIN [Concomitant]
     Active Substance: HEPARIN SODIUM
     Indication: PULMONARY EMBOLISM
     Dates: start: 20200821
  3. REMDESIVIR. [Suspect]
     Active Substance: REMDESIVIR
     Indication: COVID-19 PNEUMONIA
     Dosage: DATE OF MOST RECENT DOSE OF REMDESIVIR PRIOR TO EVENTS ONSET: 20/AUG/2020 AT 14:49
     Route: 042
     Dates: start: 20200813
  4. MEROPENEM. [Concomitant]
     Active Substance: MEROPENEM
     Indication: INFECTION
     Dates: start: 20200821, end: 20200828
  5. VANCOMYCIN [Concomitant]
     Active Substance: VANCOMYCIN
     Indication: INFECTION
     Dates: start: 20200821, end: 20200828
  6. TOCILIZUMAB. [Suspect]
     Active Substance: TOCILIZUMAB
     Indication: COVID-19 PNEUMONIA
     Dosage: AT 17:50
     Route: 042
     Dates: start: 20200813
  7. DEXAMETHASONE. [Concomitant]
     Active Substance: DEXAMETHASONE
     Indication: COVID-19
     Dates: start: 20200811, end: 20200820
  8. HYDROCORTISONE. [Concomitant]
     Active Substance: HYDROCORTISONE
     Indication: SHOCK
     Dates: start: 20200820
  9. MIDAZOLAM. [Concomitant]
     Active Substance: MIDAZOLAM
     Indication: SEDATION
     Dates: start: 20200813
  10. AZITHROMYCIN ANHYDROUS. [Concomitant]
     Active Substance: AZITHROMYCIN ANHYDROUS
     Indication: COVID-19
     Dates: start: 20200806, end: 20200811
  11. CISATRACURIO [Concomitant]
     Indication: NEUROMUSCULAR BLOCKADE
     Dates: start: 20200813, end: 20200815
  12. FENTANIL [Concomitant]
     Active Substance: FENTANYL
     Indication: SEDATION
     Dates: start: 20200813
  13. CLEXANE [Concomitant]
     Active Substance: ENOXAPARIN SODIUM
     Indication: PULMONARY EMBOLISM
     Dates: start: 20200811, end: 20200821
  14. NORADRENALINE [Concomitant]
     Active Substance: NOREPINEPHRINE
     Indication: SHOCK
     Dates: start: 20200813, end: 20200819
  15. HYDROXYCHLOROQUINE [Concomitant]
     Active Substance: HYDROXYCHLOROQUINE
     Indication: COVID-19
     Dates: start: 20200806, end: 20200811

REACTIONS (4)
  - Pneumothorax [Recovering/Resolving]
  - Pneumomediastinum [Recovering/Resolving]
  - Intestinal ischaemia [Fatal]
  - Acute kidney injury [Not Recovered/Not Resolved]

NARRATIVE: CASE EVENT DATE: 20200814
